FAERS Safety Report 8556798-4 (Version None)
Quarter: 2012Q3

REPORT INFORMATION
  Report Type: 
  Country: None (occurrence: None)
  Receive Date: 20120719
  Receipt Date: 20120713
  Transmission Date: 20120928
  Serious: Yes (Hospitalization)
  Sender: FDA-Public Use
  Company Number: 136603

PATIENT
  Age: 62 Year
  Sex: Male

DRUGS (4)
  1. CARBOPLATIN [Suspect]
     Indication: ADENOSQUAMOUS CELL LUNG CANCER STAGE III
     Dosage: AUC 6 MIN-MG/ML ON DAY 1 EVERY 3 WEEKS
  2. PACLITAXEL [Suspect]
     Indication: ADENOSQUAMOUS CELL LUNG CANCER STAGE III
     Dosage: 200MG/M2 ON DAY 1 EVERY 3 WEEKS
  3. PARAPLATIN [Concomitant]
  4. PACLITAXEL [Concomitant]

REACTIONS (3)
  - BLOOD PRESSURE INCREASED [None]
  - ANAEMIA [None]
  - POSTERIOR REVERSIBLE ENCEPHALOPATHY SYNDROME [None]
